FAERS Safety Report 9723093 (Version 1)
Quarter: 2013Q4

REPORT INFORMATION
  Report Type: Spontaneous
  Country: KR (occurrence: KR)
  Receive Date: 20131202
  Receipt Date: 20131202
  Transmission Date: 20140711
  Serious: Yes (Other)
  Sender: FDA-Public Use
  Company Number: KR-BAYER-2013-143907

PATIENT
  Age: 65 Year
  Sex: Male

DRUGS (11)
  1. ACETYLSALICYLIC ACID (} 100 MG) [Suspect]
  2. WARFARIN [Interacting]
  3. AMIODARONE [Concomitant]
     Indication: ATRIAL FIBRILLATION
     Dosage: 400MG PER DAY
  4. AMIODARONE [Concomitant]
     Indication: VENTRICULAR TACHYCARDIA
  5. VITAMIN K [Concomitant]
     Route: 042
  6. PLASMA [Concomitant]
  7. AMPHOTERICIN [Concomitant]
     Indication: PNEUMONIA
  8. TEICOPLANIN [Concomitant]
  9. DILTIAZEM [Concomitant]
  10. VALSARTAN [Concomitant]
  11. NICORANDIL [Concomitant]

REACTIONS (3)
  - Haemoptysis [None]
  - Acute respiratory distress syndrome [Recovering/Resolving]
  - Labelled drug-drug interaction medication error [None]
